FAERS Safety Report 6581768-5 (Version None)
Quarter: 2010Q1

REPORT INFORMATION
  Report Type: 
  Country: None (occurrence: None)
  Receive Date: 20100215
  Receipt Date: 20100203
  Transmission Date: 20100710
  Serious: Yes (Other)
  Sender: FDA-Public Use
  Company Number: PHEH2010US01993

PATIENT
  Sex: Male

DRUGS (3)
  1. VALTURNA [Suspect]
     Indication: HYPERTENSION
     Route: 048
  2. TEKTURNA [Suspect]
     Indication: HYPERTENSION
     Dosage: UNK
     Route: 048
  3. BENICAR [Concomitant]
     Indication: HYPERTENSION
     Route: 048

REACTIONS (2)
  - BACK DISORDER [None]
  - SURGERY [None]
